FAERS Safety Report 12773989 (Version 2)
Quarter: 2016Q3

REPORT INFORMATION
  Report Type: Spontaneous
  Country: BG (occurrence: BG)
  Receive Date: 20160923
  Receipt Date: 20160926
  Transmission Date: 20161109
  Serious: Yes (Hospitalization, Other)
  Sender: FDA-Public Use
  Company Number: BG-ROCHE-1832749

PATIENT
  Age: 71 Year
  Sex: Female

DRUGS (1)
  1. RITUXIMAB [Suspect]
     Active Substance: RITUXIMAB
     Indication: WALDENSTROM^S MACROGLOBULINAEMIA
     Dosage: SIX COURSES OF RITUXIMAB
     Route: 065
     Dates: start: 201309, end: 201403

REACTIONS (4)
  - Respiratory failure [Unknown]
  - Haemodynamic instability [Unknown]
  - Coma [Unknown]
  - Progressive multifocal leukoencephalopathy [Unknown]
